FAERS Safety Report 5880443-X (Version None)
Quarter: 2008Q3

REPORT INFORMATION
  Report Type: 
  Country: None (occurrence: None)
  Receive Date: 20080912
  Receipt Date: 20080602
  Transmission Date: 20090109
  Serious: No
  Sender: FDA-Public Use
  Company Number: US-ABBOTT-08P-163-0447928-00

PATIENT
  Sex: Female
  Weight: 72.64 kg

DRUGS (7)
  1. HUMIRA [Suspect]
     Indication: ANKYLOSING SPONDYLITIS
     Route: 058
     Dates: start: 20080201
  2. CELECOXIB [Concomitant]
     Indication: PAIN
     Route: 048
  3. HYDROXYCHLOROQUINE SULFATE [Concomitant]
     Indication: ANKYLOSING SPONDYLITIS
     Route: 048
  4. FLUOXETINE HYDROCHLORIDE [Concomitant]
     Indication: DEPRESSION
     Route: 048
  5. SEROQUEL [Concomitant]
     Indication: BIPOLAR DISORDER
     Route: 048
  6. LORAZEPAM [Concomitant]
     Indication: BIPOLAR DISORDER
     Dosage: NEEDING MORE FREQUENTLY
     Route: 048
  7. LORAZEPAM [Concomitant]
     Indication: DEPRESSION

REACTIONS (4)
  - AGITATION [None]
  - ANXIETY [None]
  - FEELING JITTERY [None]
  - INITIAL INSOMNIA [None]
